FAERS Safety Report 6609785-7 (Version None)
Quarter: 2010Q1

REPORT INFORMATION
  Report Type: 
  Country: None (occurrence: None)
  Receive Date: 20100302
  Receipt Date: 20100217
  Transmission Date: 20100710
  Serious: Yes (Other)
  Sender: FDA-Public Use
  Company Number: PHHY2010JP09497

PATIENT
  Age: 39 Year
  Sex: Female

DRUGS (5)
  1. CYCLOSPORINE [Suspect]
     Indication: UNRELATED DONOR BONE MARROW TRANSPLANTATION THERAPY
     Dosage: 1.5 MG/KG/DAY
  2. CYTARABINE [Concomitant]
     Indication: UNRELATED DONOR BONE MARROW TRANSPLANTATION THERAPY
     Dosage: 750MG/M2
  3. FLUDARABINE PHOSPHATE [Concomitant]
     Indication: UNRELATED DONOR BONE MARROW TRANSPLANTATION THERAPY
     Dosage: 30MG/M2
  4. ANTITHYMOCYTE IMMUNOGLOBULIN [Concomitant]
     Indication: UNRELATED DONOR BONE MARROW TRANSPLANTATION THERAPY
     Dosage: 15MG/KG
  5. METHOTREXATE [Concomitant]
     Indication: UNRELATED DONOR BONE MARROW TRANSPLANTATION THERAPY

REACTIONS (6)
  - ARRHYTHMIA [None]
  - CARDIAC FAILURE [None]
  - HUMAN HERPES VIRUS 6 SEROLOGY POSITIVE [None]
  - PNEUMONIA [None]
  - RENAL FAILURE ACUTE [None]
  - REVERSIBLE POSTERIOR LEUKOENCEPHALOPATHY SYNDROME [None]
